FAERS Safety Report 8060346-5 (Version None)
Quarter: 2012Q1

REPORT INFORMATION
  Report Type: 
  Country: None (occurrence: None)
  Receive Date: 20120119
  Receipt Date: 20120119
  Transmission Date: 20120608
  Serious: Yes (Hospitalization)
  Sender: FDA-Public Use
  Company Number: None

PATIENT
  Age: 83 Year
  Sex: Male
  Weight: 70 kg

DRUGS (17)
  1. PLAVIX [Suspect]
     Indication: CORONARY ARTERY DISEASE
     Dosage: 75MG M W F PO  CHRONIC
     Route: 048
  2. LOVENOX [Suspect]
     Indication: COMPRESSION FRACTURE
     Dosage: 10MG DAILY SQ RECENT
     Route: 058
  3. SPIRONOLACTONE [Concomitant]
  4. CALCIUM CARBONATE [Concomitant]
  5. CARBIDOPA [Concomitant]
  6. OXYCODONE HCL [Concomitant]
  7. COLACE [Concomitant]
  8. ARICEPT [Concomitant]
  9. LEVODOPA [Concomitant]
  10. FISH OIL [Concomitant]
  11. VITAMIN B-12 [Concomitant]
  12. ASPIRIN [Suspect]
     Indication: CEREBROVASCULAR ACCIDENT
     Dosage: 182 MG PO DAILY CHRONIC
     Route: 048
  13. MIRALAX [Concomitant]
  14. ACETAMINOPHEN [Concomitant]
  15. NIACIN [Concomitant]
  16. PRAVASTATIN [Concomitant]
  17. M.V.I. [Concomitant]

REACTIONS (3)
  - GASTROINTESTINAL HAEMORRHAGE [None]
  - HAEMOGLOBIN DECREASED [None]
  - DUODENAL ULCER [None]
